FAERS Safety Report 19242318 (Version 1)
Quarter: 2021Q2

REPORT INFORMATION
  Report Type: Spontaneous
  Country: DE (occurrence: DE)
  Receive Date: 20210510
  Receipt Date: 20210510
  Transmission Date: 20210717
  Serious: Yes (Hospitalization, Other)
  Sender: FDA-Public Use
  Company Number: DE-ANIPHARMA-2021-DE-000078

PATIENT
  Age: 62 Year
  Sex: Female
  Weight: 65 kg

DRUGS (7)
  1. RANOLAZINE EXTENDED?RELEASE (NON?SPECIFIC) [Suspect]
     Active Substance: RANOLAZINE
     Indication: HYPERTENSION
     Dosage: 375 MG DAILY
  2. LEVOTHYROXINE. [Concomitant]
     Active Substance: LEVOTHYROXINE
     Dosage: 100 MICROGRAM DAILY
  3. LEVODOPA + BENSERAZIDE [Concomitant]
     Dosage: 200 MG + 50 MG DAILY
  4. AGOMELATINE [Concomitant]
     Active Substance: AGOMELATINE
     Dosage: 50 MG DAILY
  5. RASAGILINE. [Suspect]
     Active Substance: RASAGILINE
     Indication: PARKINSON^S DISEASE
     Dosage: 1 MG DAILY
  6. PRAMIPEXOLE. [Concomitant]
     Active Substance: PRAMIPEXOLE
     Dosage: 0.525 MG DAILY
  7. MOCLOBEMIDE [Suspect]
     Active Substance: MOCLOBEMIDE
     Indication: DEPRESSION
     Dosage: 450 MG DAILY

REACTIONS (1)
  - Serotonin syndrome [Recovered/Resolved]
